FAERS Safety Report 7084676-9 (Version None)
Quarter: 2010Q4

REPORT INFORMATION
  Report Type: 
  Country: None (occurrence: None)
  Receive Date: 20101104
  Receipt Date: 20101025
  Transmission Date: 20110411
  Serious: Yes (Hospitalization, Other)
  Sender: FDA-Public Use
  Company Number: US-CELGENEUS-163-21880-10061678

PATIENT
  Sex: Female
  Weight: 50.5 kg

DRUGS (19)
  1. REVLIMID [Suspect]
     Indication: MULTIPLE MYELOMA
     Route: 048
     Dates: start: 20100521
  2. MELPHALAN HYDROCHLORIDE [Concomitant]
     Route: 048
     Dates: start: 20100521, end: 20100524
  3. PREDNISONE [Concomitant]
     Route: 048
     Dates: start: 20100521, end: 20100524
  4. ASPIRIN [Concomitant]
     Route: 048
  5. LASIX [Concomitant]
     Route: 048
  6. POTASSIUM CHLORIDE [Concomitant]
     Route: 048
  7. LIPITOR [Concomitant]
     Route: 048
  8. CARTIA XT [Concomitant]
     Route: 048
  9. CIPROFLOXACIN [Concomitant]
     Route: 048
  10. ACYCLOVIR SODIUM [Concomitant]
     Route: 048
  11. VITAMIN D [Concomitant]
     Route: 048
  12. AZOPT [Concomitant]
     Route: 047
  13. FENTANYL [Concomitant]
     Route: 062
  14. HYDROXYZINE [Concomitant]
     Route: 048
  15. CALCIUM [Concomitant]
     Route: 048
  16. SERAX [Concomitant]
     Route: 065
  17. THEO-DUR [Concomitant]
     Route: 048
  18. TRAVATAN [Concomitant]
     Route: 047
  19. BRINZOLAMIDE [Concomitant]
     Route: 047

REACTIONS (2)
  - BACTERAEMIA [None]
  - CATARACT [None]
